FAERS Safety Report 7933607-5 (Version None)
Quarter: 2011Q4

REPORT INFORMATION
  Report Type: 
  Country: None (occurrence: None)
  Receive Date: 20111122
  Receipt Date: 20111110
  Transmission Date: 20120403
  Serious: Yes (Other)
  Sender: FDA-Public Use
  Company Number: US-AMGEN-USASP2011059124

PATIENT
  Age: 62 Year
  Sex: Female

DRUGS (1)
  1. ENBREL [Suspect]
     Indication: RHEUMATOID ARTHRITIS
     Dosage: 25 MG, 2 TIMES/WK
     Dates: start: 20110705

REACTIONS (5)
  - WEIGHT DECREASED [None]
  - CARDIOMEGALY [None]
  - CARDIAC FAILURE CONGESTIVE [None]
  - CHRONIC OBSTRUCTIVE PULMONARY DISEASE [None]
  - INJECTION SITE PAIN [None]
